FAERS Safety Report 23683792 (Version 1)
Quarter: 2024Q1

REPORT INFORMATION
  Report Type: Spontaneous
  Country: US (occurrence: None)
  Receive Date: 20240328
  Receipt Date: 20240328
  Transmission Date: 20240410
  Serious: No
  Sender: FDA-Public Use
  Company Number: None

PATIENT
  Age: 80 Year
  Sex: Female

DRUGS (1)
  1. MIEBO [Suspect]
     Active Substance: PERFLUOROHEXYLOCTANE
     Dosage: FREQUENCY : 4 TIMES A DAY;?
     Route: 047

REACTIONS (3)
  - Urticaria [None]
  - Renal disorder [None]
  - Nocturia [None]

NARRATIVE: CASE EVENT DATE: 20240328
